FAERS Safety Report 5756065-8 (Version None)
Quarter: 2008Q2

REPORT INFORMATION
  Report Type: 
  Country: None (occurrence: None)
  Receive Date: 20080602
  Receipt Date: 20080529
  Transmission Date: 20081010
  Serious: Yes (Death)
  Sender: FDA-Public Use
  Company Number: FR-GENENTECH-254265

PATIENT
  Sex: Female

DRUGS (4)
  1. EFALIZUMAB [Suspect]
     Indication: PSORIASIS
     Dosage: 0.9 ML, 1/WEEK
     Route: 058
     Dates: start: 20060501
  2. DIOSMIN [Concomitant]
     Indication: VENOUS STASIS
     Dosage: 2 UNK, QD
     Route: 048
     Dates: start: 20040101
  3. ETONOGESTREL [Concomitant]
     Indication: CONTRACEPTION
     Dosage: 1 UNK, QD
     Route: 023
     Dates: start: 20061101
  4. BROMAZEPAM [Concomitant]
     Indication: INSOMNIA
     Dosage: 0.5 UNK, QD

REACTIONS (1)
  - DEATH [None]
